FAERS Safety Report 8799661 (Version 1)
Quarter: 2012Q4

REPORT INFORMATION
  Report Type: Spontaneous
  Country: DE (occurrence: None)
  Receive Date: 20120914
  Receipt Date: 20120914
  Transmission Date: 20130627
  Serious: Yes (Death)
  Sender: FDA-Public Use
  Company Number: DE-009317

PATIENT
  Age: 31 Year
  Sex: Male
  Weight: 100 kg

DRUGS (2)
  1. BUDENOFALK [Suspect]
     Indication: DIARRHOEA HAEMORRHAGIC
     Dosage: daily dose 1-1-1 oral
     Route: 048
  2. PENTASA [Suspect]
     Indication: DIARRHOEA HAEMORRHAGIC
     Dosage: 1-0-1 oral
     Route: 048

REACTIONS (5)
  - Delirium [None]
  - Sepsis [None]
  - Pancreatitis acute [None]
  - Renal failure [None]
  - Thrombocytopenia [None]
